FAERS Safety Report 18763245 (Version 1)
Quarter: 2021Q1

REPORT INFORMATION
  Report Type: Spontaneous
  Country: AU (occurrence: AU)
  Receive Date: 20210120
  Receipt Date: 20210120
  Transmission Date: 20210419
  Serious: Yes (Other)
  Sender: FDA-Public Use
  Company Number: AU-AMGEN-AUSSP2021006934

PATIENT
  Age: 74 Year
  Sex: Female

DRUGS (5)
  1. METHOTREXATE. [Concomitant]
     Active Substance: METHOTREXATE
  2. COVERSYL [PERINDOPRIL ARGININE] [Concomitant]
     Active Substance: PERINDOPRIL ARGININE
  3. PROLIA [Suspect]
     Active Substance: DENOSUMAB
     Indication: FRACTURE
     Dosage: 60 MILLIGRAM, Q6MO
     Route: 058
  4. FLECAINIDE [Concomitant]
     Active Substance: FLECAINIDE
  5. PREDNISOLONE. [Concomitant]
     Active Substance: PREDNISOLONE

REACTIONS (3)
  - Gingival disorder [Not Recovered/Not Resolved]
  - Gingivitis [Not Recovered/Not Resolved]
  - Off label use [Unknown]

NARRATIVE: CASE EVENT DATE: 202006
